FAERS Safety Report 11150951 (Version 2)
Quarter: 2015Q2

REPORT INFORMATION
  Report Type: Spontaneous
  Country: US (occurrence: US)
  Receive Date: 20150601
  Receipt Date: 20150604
  Transmission Date: 20150821
  Serious: Yes (Hospitalization, Other)
  Sender: FDA-Public Use
  Company Number: US-BAUSCH-BL-2015-012943

PATIENT
  Sex: Female
  Weight: 49.03 kg

DRUGS (1)
  1. XENAZINE [Suspect]
     Active Substance: TETRABENAZINE
     Indication: HUNTINGTON^S DISEASE
     Route: 048
     Dates: start: 2015, end: 20150523

REACTIONS (6)
  - Paranoia [Unknown]
  - Depression [Unknown]
  - Hospitalisation [Unknown]
  - Agitation [Unknown]
  - Drug ineffective [Unknown]
  - Anuria [Unknown]

NARRATIVE: CASE EVENT DATE: 2015
